FAERS Safety Report 6630920-9 (Version None)
Quarter: 2010Q1

REPORT INFORMATION
  Report Type: 
  Country: None (occurrence: None)
  Receive Date: 20100311
  Receipt Date: 20100302
  Transmission Date: 20100710
  Serious: Yes (Other)
  Sender: FDA-Public Use
  Company Number: DE-ELI_LILLY_AND_COMPANY-DE201002001324

PATIENT
  Sex: Female

DRUGS (2)
  1. ZYPREXA [Suspect]
     Indication: SCHIZOPHRENIA
     Dosage: UNK, UNKNOWN
     Route: 048
     Dates: start: 20000101, end: 20001001
  2. ZYPREXA [Suspect]
     Dosage: 40 MG, UNKNOWN
     Route: 048
     Dates: start: 20010301

REACTIONS (5)
  - AMENORRHOEA [None]
  - OVARIAN CYST [None]
  - OVERDOSE [None]
  - POLYCYSTIC OVARIES [None]
  - WEIGHT INCREASED [None]
